FAERS Safety Report 15883401 (Version 1)
Quarter: 2019Q1

REPORT INFORMATION
  Report Type: Spontaneous
  Country: DE (occurrence: DE)
  Receive Date: 20190129
  Receipt Date: 20190129
  Transmission Date: 20190417
  Serious: Yes (Hospitalization)
  Sender: FDA-Public Use
  Company Number: DE-ACCORD-103787

PATIENT
  Age: 74 Year
  Sex: Male

DRUGS (9)
  1. RAMIPRIL. [Suspect]
     Active Substance: RAMIPRIL
     Indication: PRODUCT USED FOR UNKNOWN INDICATION
     Dosage: 5 MG, 0-0-1-0
  2. ASS 100 [Concomitant]
     Active Substance: ASPIRIN
     Dosage: 100 MG, 0-1-0-0
  3. ATORVASTATIN/ATORVASTATIN CALCIUM [Concomitant]
     Dosage: 10 MG, 1-0-0-0 MO / WD / FR
  4. BRIMO-VISION [Concomitant]
     Dosage: NK MG, 1-0-1-0
     Route: 047
  5. NITRENDIPINE [Suspect]
     Active Substance: NITRENDIPINE
     Indication: PRODUCT USED FOR UNKNOWN INDICATION
     Dosage: 20 MG, 0-0-1-0
  6. VISC-OPHTAL [Concomitant]
     Dosage: NK MG, 1-1-1-0
     Route: 047
  7. VALSARTAN. [Suspect]
     Active Substance: VALSARTAN
     Indication: PRODUCT USED FOR UNKNOWN INDICATION
     Dosage: 80 MG, 0-0-1-0
  8. BISOPROLOL [Suspect]
     Active Substance: BISOPROLOL
     Indication: PRODUCT USED FOR UNKNOWN INDICATION
     Dosage: 5 MG, 0-0-1-0
  9. LEVODOPA/BENSERAZID-NEURAXPHARM [Suspect]
     Active Substance: BENSERAZIDE\LEVODOPA
     Indication: PRODUCT USED FOR UNKNOWN INDICATION
     Dosage: 100/25 MG, 1.25-1.25-1.25-1.25-1.25

REACTIONS (2)
  - Product prescribing error [Unknown]
  - Syncope [Unknown]

NARRATIVE: CASE EVENT DATE: 20151018
